FAERS Safety Report 19284853 (Version 1)
Quarter: 2021Q2

REPORT INFORMATION
  Report Type: Spontaneous
  Country: US (occurrence: US)
  Receive Date: 20210521
  Receipt Date: 20210521
  Transmission Date: 20210717
  Serious: Yes (Life-Threatening, Hospitalization)
  Sender: FDA-Public Use
  Company Number: US-MYLANLABS-2021M1029296

PATIENT
  Age: 52 Year
  Sex: Female

DRUGS (5)
  1. NOREPINEPHRINE. [Suspect]
     Active Substance: NOREPINEPHRINE
     Indication: TOXICITY TO VARIOUS AGENTS
     Dosage: UNK
     Route: 065
  2. SODIUM BICARBONATE. [Suspect]
     Active Substance: SODIUM BICARBONATE
     Indication: TOXICITY TO VARIOUS AGENTS
     Dosage: RECEIVED SEVERAL AMPOULES
     Route: 065
  3. LIDOCAINE. [Suspect]
     Active Substance: LIDOCAINE
     Indication: TOXICITY TO VARIOUS AGENTS
     Dosage: 1 MILLIGRAM/KILOGRAM
     Route: 065
  4. AMITRIPTYLINE [Suspect]
     Active Substance: AMITRIPTYLINE
     Indication: PRODUCT USED FOR UNKNOWN INDICATION
     Dosage: UNK
     Route: 065
  5. LIDOCAINE. [Suspect]
     Active Substance: LIDOCAINE
     Indication: TOXICITY TO VARIOUS AGENTS
     Dosage: 1 MILLIGRAM, QMINUTE, RATE: 1 MG/MIN
     Route: 042

REACTIONS (11)
  - Sinus tachycardia [Unknown]
  - Hypotension [Unknown]
  - Overdose [Recovering/Resolving]
  - Drug ineffective [Unknown]
  - Toxicity to various agents [Recovering/Resolving]
  - Electrocardiogram QRS complex prolonged [Recovering/Resolving]
  - Generalised tonic-clonic seizure [Unknown]
  - Electrocardiogram abnormal [Recovering/Resolving]
  - Ejection fraction decreased [Unknown]
  - Blood lactic acid increased [Unknown]
  - Electrocardiogram QT prolonged [Recovering/Resolving]
